FAERS Safety Report 12473034 (Version 1)
Quarter: 2016Q2

REPORT INFORMATION
  Report Type: Spontaneous
  Country: US (occurrence: US)
  Receive Date: 20160616
  Receipt Date: 20160616
  Transmission Date: 20160815
  Serious: No
  Sender: FDA-Public Use
  Company Number: US-BAYER-2016-115656

PATIENT
  Age: 2 Year
  Sex: Male
  Weight: 14.51 kg

DRUGS (1)
  1. MIRALAX [Suspect]
     Active Substance: POLYETHYLENE GLYCOL 3350
     Indication: CONSTIPATION
     Dosage: UNK - OTHER FREQ.
     Route: 048

REACTIONS (10)
  - Diarrhoea [Recovered/Resolved]
  - Drug administered to patient of inappropriate age [None]
  - Pain in extremity [Recovered/Resolved]
  - Erythema [Recovered/Resolved]
  - Abdominal distension [Recovered/Resolved]
  - Constipation [None]
  - Flatulence [Recovered/Resolved]
  - Erythema [None]
  - Product use issue [None]
  - Drug ineffective [None]
